FAERS Safety Report 9839879 (Version 1)
Quarter: 2014Q1

REPORT INFORMATION
  Report Type: Spontaneous
  Country: JP (occurrence: JP)
  Receive Date: 20140124
  Receipt Date: 20140124
  Transmission Date: 20141002
  Serious: Yes (Other)
  Sender: FDA-Public Use
  Company Number: PHHY2014JP004800

PATIENT
  Age: 62 Year
  Sex: Male

DRUGS (2)
  1. CARBOPLATIN [Suspect]
     Indication: SMALL CELL LUNG CANCER LIMITED STAGE
     Route: 042
  2. ETOPOSIDE SANDOZ [Suspect]
     Indication: SMALL CELL LUNG CANCER LIMITED STAGE
     Route: 042

REACTIONS (8)
  - Henoch-Schonlein purpura [Unknown]
  - Arthralgia [Unknown]
  - Purpura [Unknown]
  - Clostridium difficile colitis [Unknown]
  - Abdominal pain [Unknown]
  - Proteinuria [Unknown]
  - Diarrhoea [Unknown]
  - Haematuria [Unknown]
